FAERS Safety Report 8406833-9 (Version None)
Quarter: 2012Q2

REPORT INFORMATION
  Report Type: 
  Country: None (occurrence: None)
  Receive Date: 20120604
  Receipt Date: 20120524
  Transmission Date: 20120825
  Serious: Yes (Life-Threatening)
  Sender: FDA-Public Use
  Company Number: DE-JNJFOC-20120511612

PATIENT
  Sex: Male
  Weight: 42.6 kg

DRUGS (3)
  1. MESALAMINE [Concomitant]
  2. REMICADE [Suspect]
     Indication: CROHN'S DISEASE
     Route: 042
     Dates: start: 20120126, end: 20120503
  3. METHOTREXATE [Concomitant]

REACTIONS (2)
  - INFUSION RELATED REACTION [None]
  - ANAPHYLACTIC REACTION [None]
